FAERS Safety Report 8750016 (Version 3)
Quarter: 2012Q4

REPORT INFORMATION
  Report Type: Spontaneous
  Country: US (occurrence: None)
  Receive Date: 20120807
  Receipt Date: 20120919
  Transmission Date: 20130627
  Serious: Yes (Other)
  Sender: FDA-Public Use
  Company Number: US-1193376

PATIENT
  Age: 90 Year
  Sex: Male
  Weight: 90.72 kg

DRUGS (7)
  1. LATANOPROST [Suspect]
     Indication: GLAUCOMA
     Route: 047
     Dates: end: 2012
  2. SIMVASTATIN [Concomitant]
  3. ASPIRIN [Concomitant]
  4. FINASTERIDE [Concomitant]
  5. FOLIC ACID [Concomitant]
  6. VITAMIN D [Concomitant]
  7. CLONIDINE [Concomitant]

REACTIONS (1)
  - BLOOD PRESSURE SYSTOLIC INCREASED [None]
